FAERS Safety Report 13562510 (Version 1)
Quarter: 2017Q2

REPORT INFORMATION
  Report Type: Spontaneous
  Country: US (occurrence: US)
  Receive Date: 20170516
  Receipt Date: 20170516
  Transmission Date: 20170830
  Serious: No
  Sender: FDA-Public Use
  Company Number: US-PFIZER INC-2017208679

PATIENT
  Sex: Female

DRUGS (1)
  1. XELJANZ XR [Suspect]
     Active Substance: TOFACITINIB CITRATE
     Dosage: UNK

REACTIONS (20)
  - Headache [Unknown]
  - Burning sensation [Unknown]
  - Arthralgia [Unknown]
  - Depression [Unknown]
  - Nail discolouration [Unknown]
  - Pyrexia [Unknown]
  - Oedema peripheral [Unknown]
  - Erythema [Unknown]
  - Contusion [Unknown]
  - Myalgia [Unknown]
  - Muscular weakness [Unknown]
  - Menstrual disorder [Unknown]
  - Arthropathy [Unknown]
  - Appetite disorder [Unknown]
  - Chills [Unknown]
  - Rash [Unknown]
  - Fatigue [Unknown]
  - Back pain [Unknown]
  - Joint contracture [Unknown]
  - Muscle spasms [Unknown]
